FAERS Safety Report 5354731-X (Version None)
Quarter: 2007Q2

REPORT INFORMATION
  Report Type: 
  Country: None (occurrence: None)
  Receive Date: 20070612
  Receipt Date: 20070601
  Transmission Date: 20071010
  Serious: Yes (Hospitalization)
  Sender: FDA-Public Use
  Company Number: DE-PFIZER INC-2006111468

PATIENT
  Sex: Male
  Weight: 79 kg

DRUGS (17)
  1. SU-011,248 [Suspect]
     Indication: METASTATIC RENAL CELL CARCINOMA
     Route: 048
     Dates: start: 20060522, end: 20060618
  2. SU-011,248 [Suspect]
     Route: 048
  3. LEVOTHYROXINE SODIUM [Concomitant]
  4. ALLOPURINOL [Concomitant]
  5. CANDESARTAN [Concomitant]
  6. CARBAMAZEPINE [Concomitant]
  7. YEAST [Concomitant]
  8. AESCIN [Concomitant]
  9. DEXIBUPROFEN [Concomitant]
  10. AMBROXOL [Concomitant]
  11. DIHYDROCODEINE BITARTRATE INJ [Concomitant]
     Route: 048
  12. METAMIZOLE [Concomitant]
     Route: 048
  13. DICLOFENAC [Concomitant]
     Route: 048
  14. TRAMADOL HCL [Concomitant]
     Route: 048
  15. SELENIUM SULFIDE [Concomitant]
     Route: 048
  16. BETACAROTENE [Concomitant]
     Route: 048
  17. MULTIVITAMIN [Concomitant]
     Route: 048

REACTIONS (1)
  - ABSCESS [None]
